FAERS Safety Report 10043313 (Version 2)
Quarter: 2014Q2

REPORT INFORMATION
  Report Type: Spontaneous
  Country: IE (occurrence: IE)
  Receive Date: 20140328
  Receipt Date: 20140525
  Transmission Date: 20141212
  Serious: Yes (Other)
  Sender: FDA-Public Use
  Company Number: IE-AMGEN-IRLSP2014022164

PATIENT
  Age: 33 Year
  Sex: 0

DRUGS (5)
  1. ENBREL [Suspect]
     Indication: PRODUCT USED FOR UNKNOWN INDICATION
     Dosage: UNK
     Route: 065
     Dates: start: 201303
  2. ENBREL [Suspect]
     Dosage: 25 MG, EVERY TWO WEEKS
     Route: 065
     Dates: start: 201401, end: 2014
  3. EUMOVATE [Concomitant]
     Indication: PSORIATIC ARTHROPATHY
     Dosage: 1 DF, 1X/DAY
  4. DOVOBET [Concomitant]
     Dosage: 1 DF, 1X/DAY
  5. YASMIN [Concomitant]
     Dosage: 1 DF, 1X/DAY

REACTIONS (3)
  - Inflammation [Unknown]
  - Demyelination [Unknown]
  - Clinically isolated syndrome [Not Recovered/Not Resolved]
